FAERS Safety Report 22825064 (Version 8)
Quarter: 2024Q2

REPORT INFORMATION
  Report Type: Spontaneous
  Country: PH (occurrence: PH)
  Receive Date: 20230816
  Receipt Date: 20240503
  Transmission Date: 20240716
  Serious: Yes (Life-Threatening, Hospitalization)
  Sender: FDA-Public Use
  Company Number: PH-002147023-NVSC2023PH175332

PATIENT
  Age: 52 Year
  Sex: Male
  Weight: 54.5 kg

DRUGS (38)
  1. LEVOFLOXACIN [Suspect]
     Active Substance: LEVOFLOXACIN
     Indication: Tuberculosis
     Dosage: 1000 MG, QD
     Route: 065
     Dates: start: 20230714, end: 20230807
  2. LEVOFLOXACIN [Suspect]
     Active Substance: LEVOFLOXACIN
     Dosage: 1000 MG, QD
     Route: 065
     Dates: start: 20231012
  3. LEVOFLOXACIN [Suspect]
     Active Substance: LEVOFLOXACIN
     Dosage: 1000 MG
     Route: 065
     Dates: start: 20230810, end: 20231008
  4. LINEZOLID [Suspect]
     Active Substance: LINEZOLID
     Indication: Tuberculosis
     Dosage: 600 MG OD
     Route: 065
     Dates: start: 20230714, end: 20230807
  5. LINEZOLID [Suspect]
     Active Substance: LINEZOLID
     Dosage: 600 MG
     Route: 065
     Dates: start: 20230810, end: 20230917
  6. AMLODIPINE [Concomitant]
     Active Substance: AMLODIPINE BESYLATE
     Indication: Hypertension
     Dosage: 50 MG TAB 1 OD
     Route: 048
     Dates: start: 20230714, end: 20230808
  7. ATORVASTATIN [Concomitant]
     Active Substance: ATORVASTATIN
     Indication: Diabetes mellitus
     Dosage: 500 MG, BID 1 TAB
     Route: 048
     Dates: start: 20230721, end: 20230808
  8. ATORVASTATIN [Concomitant]
     Active Substance: ATORVASTATIN
     Indication: Product used for unknown indication
     Dosage: 20 MG/TAB 1 TABLET OD
     Route: 048
     Dates: start: 20230811
  9. BETAHISTINE [Concomitant]
     Active Substance: BETAHISTINE
     Indication: Product used for unknown indication
     Dosage: 24 MG/TAB 1 TABLET TID
     Route: 065
     Dates: start: 20230809
  10. BETHANECHOL [Concomitant]
     Active Substance: BETHANECHOL
     Indication: Product used for unknown indication
     Dosage: 25MG/TABLET 1 TABLET OD
     Route: 065
     Dates: start: 20231019, end: 20231021
  11. CALCIUM CARBONATE [Concomitant]
     Active Substance: CALCIUM CARBONATE
     Indication: Product used for unknown indication
     Dosage: 500MG/TAB 1 TAB BID
     Route: 065
     Dates: start: 20231007, end: 20231019
  12. DEXTROSE [Concomitant]
     Active Substance: DEXTROSE\DEXTROSE MONOHYDRATE
     Indication: Fluid replacement
     Dosage: 1 L
     Route: 065
     Dates: start: 20231007
  13. FOSFOMYCIN [Concomitant]
     Active Substance: FOSFOMYCIN
     Indication: Product used for unknown indication
     Dosage: 3G Q48 X 3 DOSES
     Route: 065
     Dates: start: 20231014
  14. GLICLAZIDE [Concomitant]
     Active Substance: GLICLAZIDE
     Indication: Hypertension
     Dosage: 100 MG 1 TAB OD
     Route: 048
     Dates: start: 20230808, end: 20231006
  15. GLICLAZIDE [Concomitant]
     Active Substance: GLICLAZIDE
     Indication: Diabetes mellitus
     Dosage: 60 MG 1 TAB OD
     Route: 048
     Dates: start: 20230721
  16. INSULIN NOS [Concomitant]
     Active Substance: INSULIN NOS
     Indication: Product used for unknown indication
     Dosage: 40 MG 1 CAP OD
     Route: 048
     Dates: start: 20230808
  17. LACTULOSE [Concomitant]
     Active Substance: LACTULOSE
     Indication: Product used for unknown indication
     Dosage: 40 MG 1 TAB OD
     Route: 048
     Dates: start: 20230808
  18. LACTULOSE [Concomitant]
     Active Substance: LACTULOSE
     Dosage: 30 CC OD
     Route: 065
     Dates: start: 20230808, end: 20230811
  19. LOSARTAN [Concomitant]
     Active Substance: LOSARTAN
     Dosage: 100 MG 1 TAB OD
     Route: 048
     Dates: start: 20230808, end: 20231006
  20. LOSARTAN [Concomitant]
     Active Substance: LOSARTAN
     Indication: Hypertension
     Dosage: 50 MG TAB 1 OD
     Route: 048
     Dates: start: 20230714, end: 20230807
  21. MAGNESIUM SULFATE [Concomitant]
     Active Substance: MAGNESIUM SULFATE\MAGNESIUM SULFATE HEPTAHYDRATE
     Indication: Product used for unknown indication
     Dosage: DRIP
     Route: 065
     Dates: start: 20231007, end: 20231007
  22. METFORMIN [Concomitant]
     Active Substance: METFORMIN HYDROCHLORIDE
     Dosage: 10 MG 1 TAB OD
     Route: 065
     Dates: start: 20230808, end: 20231006
  23. METFORMIN [Concomitant]
     Active Substance: METFORMIN HYDROCHLORIDE
     Dosage: 10MG/TAB 1 TABLET OD
     Route: 065
     Dates: start: 20230809
  24. METFORMIN [Concomitant]
     Active Substance: METFORMIN HYDROCHLORIDE
     Indication: Diabetes mellitus
     Dosage: 5 MG,1 TAB OD
     Route: 048
     Dates: start: 20230714, end: 20230807
  25. VITAMINS [Concomitant]
     Active Substance: VITAMINS
     Indication: Product used for unknown indication
     Dosage: 5 ML, BID
     Route: 065
     Dates: start: 20231011
  26. ACETYLCYSTEINE [Concomitant]
     Active Substance: ACETYLCYSTEINE
     Indication: Product used for unknown indication
     Dosage: 600 MG OD
     Route: 065
     Dates: start: 20230808, end: 20230811
  27. ACETYLCYSTEINE [Concomitant]
     Active Substance: ACETYLCYSTEINE
     Dosage: 600 MG OD
     Route: 065
     Dates: start: 20230808, end: 20230811
  28. ACETYLCYSTEINE [Concomitant]
     Active Substance: ACETYLCYSTEINE
     Dosage: 600 MG ONCE A DAY
     Route: 065
     Dates: start: 20231010
  29. OMEPRAZOLE [Concomitant]
     Active Substance: OMEPRAZOLE
     Indication: Product used for unknown indication
     Dosage: 200 MG 1 TAB OD
     Route: 048
     Dates: start: 20230721, end: 20230807
  30. ACETAMINOPHEN [Concomitant]
     Active Substance: ACETAMINOPHEN
     Indication: Product used for unknown indication
     Dosage: 600 MG, PRN
     Route: 042
     Dates: start: 20230809, end: 20230811
  31. POTASSIUM CHLORIDE [Concomitant]
     Active Substance: POTASSIUM CHLORIDE
     Dosage: 750 MG 1TAB TID
     Route: 048
     Dates: start: 20230808, end: 20230811
  32. POTASSIUM CHLORIDE [Concomitant]
     Active Substance: POTASSIUM CHLORIDE
     Indication: Product used for unknown indication
     Dosage: 30 CC OD
     Route: 065
     Dates: start: 20230808, end: 20230811
  33. QUETIAPINE [Concomitant]
     Active Substance: QUETIAPINE
     Indication: Product used for unknown indication
     Dosage: 25 MG/TAB, 1/2 TABLET PRN
     Route: 065
     Dates: start: 20231011
  34. ROSUVASTATIN [Concomitant]
     Active Substance: ROSUVASTATIN
     Indication: Diabetes mellitus
     Dosage: 60 MG 1 TAB OD
     Route: 048
     Dates: start: 20230721, end: 20230807
  35. SITAGLIPTIN [Concomitant]
     Active Substance: SITAGLIPTIN
     Indication: Product used for unknown indication
     Dosage: 50MG/TAB 1 TABLET OD
     Route: 065
     Dates: start: 20231006, end: 20231007
  36. SODIUM CHLORIDE [Concomitant]
     Active Substance: SODIUM CHLORIDE
     Dosage: 1 TABLET TID
     Route: 065
     Dates: start: 20231007, end: 20231010
  37. SODIUM CHLORIDE [Concomitant]
     Active Substance: SODIUM CHLORIDE
     Indication: Product used for unknown indication
     Dosage: 2 TABLET TID
     Route: 065
     Dates: start: 20231011
  38. TOLVAPTAN [Concomitant]
     Active Substance: TOLVAPTAN
     Indication: Product used for unknown indication
     Dosage: 10MG/TAB 1/2 TABLET OD
     Route: 065
     Dates: start: 20231014, end: 20231016

REACTIONS (4)
  - Hyponatraemia [Recovered/Resolved]
  - Diabetic ophthalmoplegia [Recovered/Resolved]
  - Acute kidney injury [Recovered/Resolved]
  - Anaemia [Recovered/Resolved]

NARRATIVE: CASE EVENT DATE: 20230808
